FAERS Safety Report 5044205-8 (Version None)
Quarter: 2006Q3

REPORT INFORMATION
  Report Type: 
  Country: None (occurrence: None)
  Receive Date: 20060706
  Receipt Date: 20060626
  Transmission Date: 20061208
  Serious: Yes (Death, Hospitalization)
  Sender: FDA-Public Use
  Company Number: US-JNJFOC-20060505141

PATIENT
  Sex: Female
  Weight: 56.61 kg

DRUGS (7)
  1. REMICADE [Suspect]
     Indication: CROHN'S DISEASE
     Dosage: AT WEEK 0, 2 AND 6.
     Route: 042
  2. PREDNISONE TAB [Concomitant]
  3. PREDNISONE TAB [Concomitant]
  4. SYNTHROID [Concomitant]
  5. XANAX [Concomitant]
  6. ADVAIR DISKUS 100/50 [Concomitant]
  7. PRILOSEC [Concomitant]

REACTIONS (4)
  - ACUTE RESPIRATORY DISTRESS SYNDROME [None]
  - BLOOD ALBUMIN DECREASED [None]
  - ILEAL STENOSIS [None]
  - WEIGHT DECREASED [None]
